FAERS Safety Report 9140882 (Version 4)
Quarter: 2013Q2

REPORT INFORMATION
  Report Type: Spontaneous
  Country: US (occurrence: US)
  Receive Date: 20130305
  Receipt Date: 20130521
  Transmission Date: 20140414
  Serious: Yes (Hospitalization)
  Sender: FDA-Public Use
  Company Number: US-GILEAD-2013-0069900

PATIENT
  Age: 61 Year
  Sex: Female

DRUGS (3)
  1. LETAIRIS [Suspect]
     Indication: PULMONARY ARTERIAL HYPERTENSION
     Dosage: 5 MG, QD
     Route: 048
     Dates: start: 20130130, end: 20130318
  2. TYVASO [Concomitant]
     Indication: PRODUCT USED FOR UNKNOWN INDICATION
  3. ASPIRIN [Concomitant]

REACTIONS (7)
  - Chest pain [Unknown]
  - Blood potassium increased [Unknown]
  - Balance disorder [Unknown]
  - Anaemia [Recovering/Resolving]
  - Oedema [Recovering/Resolving]
  - Dizziness [Unknown]
  - Nausea [Unknown]
